FAERS Safety Report 6417215-3 (Version None)
Quarter: 2009Q4

REPORT INFORMATION
  Report Type: 
  Country: None (occurrence: None)
  Receive Date: 20091026
  Receipt Date: 20091016
  Transmission Date: 20100525
  Serious: Yes (Other)
  Sender: FDA-Public Use
  Company Number: 230184K09CAN

PATIENT
  Age: 47 Year
  Sex: Male

DRUGS (13)
  1. REBIF [Suspect]
     Indication: RELAPSING-REMITTING MULTIPLE SCLEROSIS
     Dosage: SEE IMAGE
     Route: 058
     Dates: start: 20090101, end: 20090101
  2. REBIF [Suspect]
     Indication: RELAPSING-REMITTING MULTIPLE SCLEROSIS
     Dosage: SEE IMAGE
     Route: 058
     Dates: start: 20090313, end: 20090101
  3. REBIF [Suspect]
     Indication: RELAPSING-REMITTING MULTIPLE SCLEROSIS
     Dosage: SEE IMAGE
     Route: 058
     Dates: start: 20090101, end: 20090424
  4. REBIF [Suspect]
     Indication: RELAPSING-REMITTING MULTIPLE SCLEROSIS
     Dosage: SEE IMAGE
     Route: 058
     Dates: start: 20090427, end: 20090517
  5. REBIF [Suspect]
     Indication: RELAPSING-REMITTING MULTIPLE SCLEROSIS
     Dosage: SEE IMAGE
     Route: 058
     Dates: start: 20090519, end: 20090708
  6. ADVIL (ADVIL /01717101/) [Concomitant]
  7. TYLENOL [Concomitant]
  8. ASPIRIN [Concomitant]
  9. GABAPENTIN [Concomitant]
  10. NOSONEX (MOMETASONE FUROATE) [Concomitant]
  11. NEXIUM [Concomitant]
  12. LORAZEPAM [Concomitant]
  13. NORVASC [Concomitant]

REACTIONS (14)
  - ALOPECIA [None]
  - BACK PAIN [None]
  - BLOOD PRESSURE DECREASED [None]
  - CHILLS [None]
  - CYSTITIS [None]
  - DIZZINESS [None]
  - INCORRECT DOSE ADMINISTERED [None]
  - INJECTION SITE ERYTHEMA [None]
  - INJECTION SITE HAEMATOMA [None]
  - INJECTION SITE PAIN [None]
  - MYALGIA [None]
  - PANCYTOPENIA [None]
  - PENILE PAIN [None]
  - PYREXIA [None]
